FAERS Safety Report 8906493 (Version 1)
Quarter: 2012Q4

REPORT INFORMATION
  Report Type: Spontaneous
  Country: US (occurrence: None)
  Receive Date: 20121113
  Receipt Date: 20121113
  Transmission Date: 20130627
  Serious: Yes (Hospitalization, Other)
  Sender: FDA-Public Use
  Company Number: None

PATIENT
  Age: 42 Year
  Sex: Female
  Weight: 56.7 kg

DRUGS (1)
  1. ADVAIR DISKUS [Suspect]
     Indication: ASTHMA
     Dosage: 500/50   2 puffs every 12
     Route: 048
     Dates: start: 20100301, end: 20121111

REACTIONS (5)
  - Candidiasis [None]
  - Pharyngitis [None]
  - Oesophageal candidiasis [None]
  - Gastrointestinal candidiasis [None]
  - Immune system disorder [None]
